FAERS Safety Report 10442382 (Version 1)
Quarter: 2014Q3

REPORT INFORMATION
  Report Type: Spontaneous
  Country: US (occurrence: US)
  Receive Date: 20140909
  Receipt Date: 20140909
  Transmission Date: 20150326
  Serious: Yes (Death, Other)
  Sender: FDA-Public Use
  Company Number: US-ABBVIE-14P-163-1279464-00

PATIENT
  Age: 52 Year
  Sex: Male

DRUGS (2)
  1. ANDROGEL [Suspect]
     Active Substance: TESTOSTERONE
     Indication: BLOOD TESTOSTERONE DECREASED
  2. DEPO-TESTOSTERONE [Suspect]
     Active Substance: TESTOSTERONE CYPIONATE
     Indication: BLOOD TESTOSTERONE DECREASED
     Route: 050

REACTIONS (6)
  - Ischaemic stroke [Fatal]
  - Acute respiratory failure [Fatal]
  - Dysphagia [Fatal]
  - Pain [Unknown]
  - Emotional distress [Unknown]
  - Unresponsive to stimuli [Fatal]
